FAERS Safety Report 10216517 (Version 1)
Quarter: 2014Q2

REPORT INFORMATION
  Report Type: Spontaneous
  Country: US (occurrence: US)
  Receive Date: 20140604
  Receipt Date: 20140604
  Transmission Date: 20141212
  Serious: No
  Sender: FDA-Public Use
  Company Number: US-PFIZER INC-2014150497

PATIENT
  Age: 54 Year
  Sex: Female
  Weight: 56.24 kg

DRUGS (4)
  1. GABAPENTIN [Suspect]
     Indication: CARPAL TUNNEL SYNDROME
     Dosage: 600 MG, 2X/DAY
  2. GABAPENTIN [Suspect]
     Indication: HYPOAESTHESIA
  3. GABAPENTIN [Suspect]
     Indication: HYPOAESTHESIA
  4. RANITIDINE [Concomitant]
     Indication: GASTRIC DISORDER
     Dosage: 150 MG, 2X/DAY
     Route: 048

REACTIONS (2)
  - Therapeutic response changed [Unknown]
  - Fibromyalgia [Unknown]
